FAERS Safety Report 16332212 (Version 1)
Quarter: 2019Q2

REPORT INFORMATION
  Report Type: Spontaneous
  Country: NO (occurrence: NO)
  Receive Date: 20190520
  Receipt Date: 20190520
  Transmission Date: 20190711
  Serious: Yes (Other)
  Sender: FDA-Public Use
  Company Number: IND-NO-009507513-1905NOR005611

PATIENT
  Sex: Male

DRUGS (1)
  1. ARCOXIA [Suspect]
     Active Substance: ETORICOXIB
     Dosage: MAXIMUM DOSE 20 MG, ABOVE THE RECOMMENDED DOSE
     Route: 048

REACTIONS (2)
  - Cardiac fibrillation [Unknown]
  - Incorrect dose administered [Unknown]
